FAERS Safety Report 24031436 (Version 1)
Quarter: 2024Q2

REPORT INFORMATION
  Report Type: Spontaneous
  Country: US (occurrence: US)
  Receive Date: 20240629
  Receipt Date: 20240629
  Transmission Date: 20240717
  Serious: No
  Sender: FDA-Public Use
  Company Number: US-GSK-US2024AMR078302

PATIENT
  Age: 30 Month
  Sex: Male

DRUGS (1)
  1. FLUTICASONE PROPIONATE [Suspect]
     Active Substance: FLUTICASONE PROPIONATE
     Indication: Asthma
     Dosage: UNK, 44 MCG, 10.6G/120 METERED TWO PUMPS IN THE MORNING AND EVENING

REACTIONS (3)
  - Device use issue [Unknown]
  - Product prescribing issue [Unknown]
  - Product dose omission issue [Unknown]
